FAERS Safety Report 6182339-5 (Version None)
Quarter: 2009Q2

REPORT INFORMATION
  Report Type: 
  Country: None (occurrence: None)
  Receive Date: 20090505
  Receipt Date: 20090423
  Transmission Date: 20091009
  Serious: Yes (Other)
  Sender: FDA-Public Use
  Company Number: 2009AP001668

PATIENT
  Age: 33 Year
  Sex: Male

DRUGS (7)
  1. CITALOPRAM HYDROBROMIDE [Suspect]
     Indication: DEPRESSION
     Dosage: 40 MG; PO, 10 MG;, 30 MG;, 60 MG;, 20 MG;, 20 MG; TID,
     Route: 048
  2. MIRTAZAPINE [Suspect]
     Indication: SLEEP DISORDER
     Dosage: 15 MG; PO
     Route: 048
     Dates: start: 20080212
  3. CINNARIZINE (CINNARIZINE) [Concomitant]
  4. ESCITALOPRAM [Concomitant]
  5. FLUOXETINE /N/A/ (FLUOXETINE /N/A/) [Concomitant]
  6. PROPRANOLOL [Concomitant]
  7. ZOPICLONE (ZOPICLONE) [Concomitant]

REACTIONS (6)
  - AGGRESSION [None]
  - ALCOHOL INTERACTION [None]
  - PHYSICAL ASSAULT [None]
  - SLEEP DISORDER [None]
  - THERAPEUTIC RESPONSE DECREASED [None]
  - VERTIGO [None]
